FAERS Safety Report 9381830 (Version 1)
Quarter: 2013Q3

REPORT INFORMATION
  Report Type: Spontaneous
  Country: US (occurrence: US)
  Receive Date: 20130703
  Receipt Date: 20130703
  Transmission Date: 20140515
  Serious: Yes (Disabling, Congenital Anomaly, Other)
  Sender: FDA-Public Use
  Company Number: US-ABBOTT-13P-163-1112713-00

PATIENT
  Sex: Male

DRUGS (1)
  1. DEPAKOTE [Suspect]
     Indication: MATERNAL EXPOSURE TIMING UNSPECIFIED
     Route: 064

REACTIONS (11)
  - Multiple injuries [Not Recovered/Not Resolved]
  - Developmental delay [Unknown]
  - Spina bifida [Unknown]
  - Foetal exposure during pregnancy [Unknown]
  - Emotional distress [Unknown]
  - Anhedonia [Unknown]
  - Tension [Unknown]
  - Physical disability [Unknown]
  - Deformity [Unknown]
  - Pain [Unknown]
  - Life expectancy shortened [Unknown]
